FAERS Safety Report 6181090-5 (Version None)
Quarter: 2009Q2

REPORT INFORMATION
  Report Type: 
  Country: None (occurrence: None)
  Receive Date: 20090506
  Receipt Date: 20090424
  Transmission Date: 20091009
  Serious: Yes (Other)
  Sender: FDA-Public Use
  Company Number: CH-ALEXION-A200900353

PATIENT

DRUGS (10)
  1. SOLIRIS [Suspect]
     Indication: HAEMOLYTIC URAEMIC SYNDROME
     Dosage: 1200 MG, UNK
     Route: 042
     Dates: start: 20090213
  2. CLAMOXYL                           /00249601/ [Suspect]
     Indication: INFECTION PROPHYLAXIS
     Dosage: 375 MG, UNK
     Route: 048
     Dates: start: 20090201, end: 20090424
  3. NEXIUM [Concomitant]
     Indication: PROPHYLAXIS AGAINST GASTROINTESTINAL ULCER
     Dosage: 40 MG, UNK
     Route: 048
     Dates: start: 20090201, end: 20090424
  4. CALCIMAGON                         /00108001/ [Concomitant]
     Indication: MINERAL SUPPLEMENTATION
     Dosage: UNK, BID
     Route: 048
     Dates: start: 20090201
  5. NORVASC [Concomitant]
     Indication: HYPERTENSION
     Dosage: 5 MG, UNK
     Route: 048
     Dates: start: 20090201
  6. TORSEMIDE [Concomitant]
     Indication: HYPERTENSION
     Dosage: 40 UNK, UNK
     Route: 048
     Dates: start: 20090201, end: 20090424
  7. BELOC ZOK [Concomitant]
     Indication: HYPERTENSION
     Dosage: 150 MG, UNK
     Route: 048
     Dates: start: 20090201
  8. CALCIUM-PHOSPHATBINDER [Concomitant]
     Dosage: UNK, TID
     Route: 048
     Dates: start: 20090201
  9. POTASSIUM CHLORIDE [Concomitant]
     Indication: MINERAL SUPPLEMENTATION
     Dosage: 40 MMOL, UNK
     Route: 048
     Dates: start: 20090201
  10. ACIDUM FOLICUM [Concomitant]
     Indication: SUPPLEMENTATION THERAPY
     Dosage: 3X/ WEEK
     Route: 048
     Dates: start: 20090201

REACTIONS (2)
  - NEUTROPENIA [None]
  - VIRAL UPPER RESPIRATORY TRACT INFECTION [None]
